FAERS Safety Report 4843839-0 (Version None)
Quarter: 2005Q4

REPORT INFORMATION
  Report Type: 
  Country: None (occurrence: None)
  Receive Date: 20051202
  Receipt Date: 20051128
  Transmission Date: 20060501
  Serious: Yes (Hospitalization)
  Sender: FDA-Public Use
  Company Number: DE-GLAXOSMITHKLINE-D0048122A

PATIENT
  Age: 34 Year
  Sex: Female
  Weight: 55 kg

DRUGS (1)
  1. NARAMIG [Suspect]
     Indication: HEADACHE
     Dosage: 2.5U PER DAY
     Route: 048
     Dates: start: 20051003, end: 20051003

REACTIONS (7)
  - HEMIANOPIA [None]
  - HEMIPARESIS [None]
  - MYOCARDIAL INFARCTION [None]
  - NAUSEA [None]
  - SOMNOLENCE [None]
  - THALAMIC INFARCTION [None]
  - VOMITING [None]
